FAERS Safety Report 13358571 (Version 2)
Quarter: 2017Q1

REPORT INFORMATION
  Report Type: Spontaneous
  Country: US (occurrence: US)
  Receive Date: 20170322
  Receipt Date: 20170324
  Transmission Date: 20170429
  Serious: Yes (Hospitalization)
  Sender: FDA-Public Use
  Company Number: US-UNITED THERAPEUTICS-UNT-2017-003772

PATIENT
  Age: 64 Year
  Sex: Female
  Weight: 49.43 kg

DRUGS (1)
  1. REMODULIN [Suspect]
     Active Substance: TREPROSTINIL
     Indication: PULMONARY HYPERTENSION
     Dosage: 0.029 ?G/KG, CONTINUING
     Route: 041
     Dates: start: 20140818

REACTIONS (4)
  - Drug hypersensitivity [Unknown]
  - Flushing [Unknown]
  - Chemotherapy [Unknown]
  - Breast cancer [Unknown]

NARRATIVE: CASE EVENT DATE: 20170313
